FAERS Safety Report 7824061-2 (Version None)
Quarter: 2011Q4

REPORT INFORMATION
  Report Type: 
  Country: None (occurrence: None)
  Receive Date: 20111019
  Receipt Date: 20111005
  Transmission Date: 20120403
  Serious: Yes (Other)
  Sender: FDA-Public Use
  Company Number: PHHY2011CH89328

PATIENT
  Age: 53 Year
  Sex: Female

DRUGS (3)
  1. PACLITAXEL [Concomitant]
     Indication: BREAST CANCER
     Dosage: UNK CYCLIC ADMINISTRATION
     Route: 041
     Dates: start: 20100202, end: 20100401
  2. FEMARA [Suspect]
     Indication: BREAST CANCER
     Dosage: UNK UKN, DAILY
     Route: 048
     Dates: start: 20100401, end: 20110701
  3. EPIRUBICIN [Concomitant]
     Indication: BREAST CANCER
     Dosage: UNK CYCLIC ADMINISTRATION
     Route: 041
     Dates: start: 20100201, end: 20100401

REACTIONS (3)
  - DYSPNOEA [None]
  - SARCOIDOSIS [None]
  - LYMPHADENOPATHY MEDIASTINAL [None]
